FAERS Safety Report 12760337 (Version 1)
Quarter: 2016Q3

REPORT INFORMATION
  Report Type: Spontaneous
  Country: US (occurrence: US)
  Receive Date: 20160919
  Receipt Date: 20160919
  Transmission Date: 20161109
  Serious: Yes (Other)
  Sender: FDA-Public Use
  Company Number: US-ABBVIE-16P-163-1725216-00

PATIENT
  Age: 36 Year
  Sex: Male

DRUGS (11)
  1. STAVUDINE. [Concomitant]
     Active Substance: STAVUDINE
     Indication: HIV INFECTION
     Dates: start: 2000
  2. ABACAVIR. [Concomitant]
     Active Substance: ABACAVIR
     Indication: HIV INFECTION
     Dates: start: 2000
  3. EMTRICITABINE [Concomitant]
     Active Substance: EMTRICITABINE
     Indication: HIV INFECTION
     Dates: start: 2007
  4. ABACAVIR. [Concomitant]
     Active Substance: ABACAVIR
     Dates: start: 2001
  5. INDINAVIR [Concomitant]
     Active Substance: INDINAVIR
     Indication: HIV INFECTION
     Dates: start: 2000
  6. RITONAVIR. [Suspect]
     Active Substance: RITONAVIR
     Route: 065
     Dates: start: 2007
  7. DIDANOSINE. [Concomitant]
     Active Substance: DIDANOSINE
     Indication: HIV INFECTION
     Dates: start: 2001
  8. LOPINAVIR/RITONAVIR [Suspect]
     Active Substance: LOPINAVIR\RITONAVIR
     Indication: HIV INFECTION
     Route: 065
     Dates: start: 2001
  9. ATAZANAVIR [Concomitant]
     Active Substance: ATAZANAVIR
     Indication: HIV INFECTION
     Dates: start: 2007
  10. RITONAVIR. [Suspect]
     Active Substance: RITONAVIR
     Indication: HIV INFECTION
     Route: 065
     Dates: start: 2000
  11. TENOFOVIR [Concomitant]
     Active Substance: TENOFOVIR
     Indication: HIV INFECTION

REACTIONS (4)
  - Retinal toxicity [Unknown]
  - Vision blurred [Unknown]
  - Maculopathy [Unknown]
  - Viraemia [Recovered/Resolved]

NARRATIVE: CASE EVENT DATE: 2000
